FAERS Safety Report 13076929 (Version 1)
Quarter: 2016Q4

REPORT INFORMATION
  Report Type: Spontaneous
  Country: CO (occurrence: CO)
  Receive Date: 20161230
  Receipt Date: 20161230
  Transmission Date: 20170207
  Serious: Yes (Other)
  Sender: FDA-Public Use
  Company Number: CO-PFIZER INC-2016600501

PATIENT
  Age: 13 Year

DRUGS (2)
  1. GENOTROPIN [Suspect]
     Active Substance: SOMATROPIN
     Indication: PITUITARY HYPOPLASIA
     Dosage: 2.2 MG, DAILY
     Route: 058
     Dates: start: 20120320
  2. GENOTROPIN [Suspect]
     Active Substance: SOMATROPIN
     Indication: BODY HEIGHT BELOW NORMAL
     Dosage: 2.2 MG, DAILY
     Route: 058
     Dates: start: 201606

REACTIONS (1)
  - Developmental hip dysplasia [Recovered/Resolved]
